FAERS Safety Report 5746081-4 (Version None)
Quarter: 2008Q2

REPORT INFORMATION
  Report Type: 
  Country: None (occurrence: None)
  Receive Date: 20080522
  Receipt Date: 20070529
  Transmission Date: 20081010
  Serious: No
  Sender: FDA-Public Use
  Company Number: A0653224A

PATIENT

DRUGS (1)
  1. BACTROBAN [Suspect]
     Indication: BREAST INFECTION
     Route: 061

REACTIONS (1)
  - DRUG EXPOSURE VIA BREAST MILK [None]
